FAERS Safety Report 23250511 (Version 1)
Quarter: 2023Q4

REPORT INFORMATION
  Report Type: Report from Study
  Country: IL (occurrence: IL)
  Receive Date: 20231201
  Receipt Date: 20231201
  Transmission Date: 20240109
  Serious: Yes (Hospitalization)
  Sender: FDA-Public Use
  Company Number: IL-TAKEDA-2023TUS115430

PATIENT
  Age: 73 Year
  Sex: Female

DRUGS (1)
  1. VEDOLIZUMAB [Suspect]
     Active Substance: VEDOLIZUMAB
     Indication: Crohn^s disease
     Dosage: UNK, Q4WEEKS
     Route: 042
     Dates: start: 20221130

REACTIONS (3)
  - Abdominal pain [Unknown]
  - Pyrexia [Recovered/Resolved]
  - Flatulence [Unknown]
